FAERS Safety Report 8253244-5 (Version None)
Quarter: 2012Q2

REPORT INFORMATION
  Report Type: 
  Country: None (occurrence: None)
  Receive Date: 20120402
  Receipt Date: 20120308
  Transmission Date: 20120825
  Serious: No
  Sender: FDA-Public Use
  Company Number: US-AMGEN-USASP2012015268

PATIENT
  Age: 84 Year
  Sex: Female

DRUGS (2)
  1. TREXALL [Concomitant]
     Indication: RHEUMATOID ARTHRITIS
     Dosage: 1 MG, UNK
     Dates: start: 19890101
  2. ENBREL [Suspect]
     Indication: RHEUMATOID ARTHRITIS
     Dosage: 50 MG, QWK
     Dates: start: 20070529, end: 20120227

REACTIONS (6)
  - HYPERTENSION [None]
  - ARTHRALGIA [None]
  - INFLUENZA [None]
  - DYSPHONIA [None]
  - INJECTION SITE REACTION [None]
  - FINGER DEFORMITY [None]
